FAERS Safety Report 6318061-1 (Version None)
Quarter: 2009Q3

REPORT INFORMATION
  Report Type: 
  Country: None (occurrence: None)
  Receive Date: 20090821
  Receipt Date: 20090818
  Transmission Date: 20100115
  Serious: Yes (Other)
  Sender: FDA-Public Use
  Company Number: US-GILEAD-2009-0023746

PATIENT
  Sex: Female
  Weight: 65.83 kg

DRUGS (13)
  1. LETAIRIS [Suspect]
     Indication: PULMONARY ARTERIAL HYPERTENSION
     Route: 048
     Dates: start: 20080923
  2. ASPIRIN [Concomitant]
  3. LASIX [Concomitant]
  4. LISINOPRIL [Concomitant]
  5. LIPITOR [Concomitant]
  6. NABUMETONE [Concomitant]
  7. FLUOXETINE [Concomitant]
  8. POTASSIUM CHLORIDE [Concomitant]
  9. RANITIDINE [Concomitant]
  10. MS CONTIN [Concomitant]
  11. ABMIEN [Concomitant]
  12. ELAVIL [Concomitant]
  13. CALCIUM [Concomitant]

REACTIONS (1)
  - HYPOTENSION [None]
